FAERS Safety Report 9166183 (Version 1)
Quarter: 2013Q1

REPORT INFORMATION
  Report Type: Spontaneous
  Country: AR (occurrence: AR)
  Receive Date: 20130315
  Receipt Date: 20130315
  Transmission Date: 20140127
  Serious: Yes (Hospitalization, Other)
  Sender: FDA-Public Use
  Company Number: PHHY2012AR118501

PATIENT
  Sex: Male

DRUGS (1)
  1. EXELON PATCH [Suspect]
     Indication: PARKINSON^S DISEASE
     Dosage: 9.5 ML, DAILY
     Route: 062
     Dates: start: 201203, end: 201204

REACTIONS (5)
  - Diaphragmatic hernia [Recovered/Resolved]
  - Concomitant disease progression [Recovered/Resolved]
  - Convulsion [Unknown]
  - Mood altered [Unknown]
  - Depression [Unknown]
